FAERS Safety Report 13154876 (Version 3)
Quarter: 2017Q1

REPORT INFORMATION
  Report Type: Spontaneous
  Country: KR (occurrence: KR)
  Receive Date: 20170126
  Receipt Date: 20170208
  Transmission Date: 20170428
  Serious: Yes (Other)
  Sender: FDA-Public Use
  Company Number: KR-JNJFOC-20140218096

PATIENT

DRUGS (2)
  1. CT-P13 (REMICADE BIOSIMILAR) [Suspect]
     Active Substance: INVESTIGATIONAL PRODUCT
     Indication: ANKYLOSING SPONDYLITIS
     Dosage: REMICADE BIOSIMILAR
     Route: 065
  2. INFLIXIMAB, RECOMBINANT [Suspect]
     Active Substance: INFLIXIMAB
     Indication: ANKYLOSING SPONDYLITIS
     Route: 042

REACTIONS (11)
  - Latent tuberculosis [Unknown]
  - Cough [Unknown]
  - Drug specific antibody present [Unknown]
  - Upper respiratory tract infection [Unknown]
  - Weight decreased [Unknown]
  - Blood creatine phosphokinase increased [Unknown]
  - Lower respiratory tract infection [Unknown]
  - Liver function test abnormal [Unknown]
  - Hypophosphataemia [Unknown]
  - Back pain [Unknown]
  - Tuberculosis [Unknown]
